FAERS Safety Report 4872280-X (Version None)
Quarter: 2005Q4

REPORT INFORMATION
  Report Type: 
  Country: None (occurrence: None)
  Receive Date: 20051201
  Receipt Date: 20050803
  Transmission Date: 20060501
  Serious: No
  Sender: FDA-Public Use
  Company Number: 2005PV000787

PATIENT
  Age: 79 Year
  Sex: Female
  Weight: 72.757 kg

DRUGS (14)
  1. BYETTA [Suspect]
     Indication: DIABETES MELLITUS NON-INSULIN-DEPENDENT
     Dosage: 5 MCG;BID;SC,  5 MG;BID;SC
     Route: 058
     Dates: start: 20050729, end: 20050730
  2. BYETTA [Suspect]
     Indication: DIABETES MELLITUS NON-INSULIN-DEPENDENT
     Dosage: 5 MCG;BID;SC,  5 MG;BID;SC
     Route: 058
     Dates: start: 20050801
  3. AMARYL [Concomitant]
  4. DIGITEK [Concomitant]
  5. .. [Concomitant]
  6. IMDUR [Concomitant]
  7. ACCUPRIL [Concomitant]
  8. COREG [Concomitant]
  9. ASPIRIN [Concomitant]
  10. VYTORIN [Concomitant]
  11. NIASPAN [Concomitant]
  12. MULTIVITAMIN [Concomitant]
  13. ASCORBIC ACID [Concomitant]
  14. CALTRATE [Concomitant]

REACTIONS (5)
  - DIZZINESS [None]
  - ERUCTATION [None]
  - FEELING ABNORMAL [None]
  - FEELING JITTERY [None]
  - NAUSEA [None]
